FAERS Safety Report 4467528-X (Version None)
Quarter: 2004Q3

REPORT INFORMATION
  Report Type: 
  Country: None (occurrence: None)
  Receive Date: 20040917
  Receipt Date: 20040811
  Transmission Date: 20050211
  Serious: No
  Sender: FDA-Public Use
  Company Number: US-JNJFOC-20040804317

PATIENT
  Age: 24 Year
  Sex: Female
  Weight: 77.1115 kg

DRUGS (10)
  1. ORTHO EVRA [Suspect]
     Indication: CONTRACEPTION
     Dosage: 1 DOSE(S), 3 IN 4 WEEK, TRANSDERMAL
     Route: 062
  2. ATENOLOL [Concomitant]
  3. LEXAPRO [Concomitant]
  4. PROGRAF [Concomitant]
  5. SINGULAIR [Concomitant]
  6. LORATADINE [Concomitant]
  7. RANITIDINE [Concomitant]
  8. AMITRIPTYLINE HCL [Concomitant]
  9. MULTIVITAMIN (MULTIVITAMINS) [Concomitant]
  10. B12 (CYANOCOBALAMIN) [Concomitant]

REACTIONS (1)
  - METRORRHAGIA [None]
